FAERS Safety Report 5856438-9 (Version None)
Quarter: 2008Q3

REPORT INFORMATION
  Report Type: 
  Country: None (occurrence: None)
  Receive Date: 20080825
  Receipt Date: 20080430
  Transmission Date: 20090109
  Serious: No
  Sender: FDA-Public Use
  Company Number: A0725633A

PATIENT
  Age: 59 Year
  Sex: Male

DRUGS (1)
  1. VERAMYST [Suspect]
     Dosage: 4SPR PER DAY
     Route: 045
     Dates: start: 20070901, end: 20071001

REACTIONS (1)
  - INTRAOCULAR PRESSURE INCREASED [None]
